FAERS Safety Report 6120335-4 (Version None)
Quarter: 2009Q1

REPORT INFORMATION
  Report Type: 
  Country: None (occurrence: None)
  Receive Date: 20090312
  Receipt Date: 20090312
  Transmission Date: 20090719
  Serious: No
  Sender: FDA-Public Use
  Company Number: None

PATIENT
  Age: 18 Year
  Sex: Female

DRUGS (7)
  1. APLISOL [Suspect]
     Indication: TUBERCULOSIS TEST
     Dosage: 0.1 ML PRN ID
     Route: 023
     Dates: start: 20090128
  2. APLISOL [Suspect]
     Indication: TUBERCULOSIS TEST
     Dosage: 0.1 ML PRN ID
     Route: 023
     Dates: start: 20090130
  3. APLISOL [Suspect]
     Indication: TUBERCULOSIS TEST
     Dosage: 0.1 ML PRN ID
     Route: 023
     Dates: start: 20090209
  4. APLISOL [Suspect]
     Indication: TUBERCULOSIS TEST
     Dosage: 0.1 ML PRN ID
     Route: 023
     Dates: start: 20090211
  5. APLISOL [Suspect]
     Indication: TUBERCULOSIS TEST
     Dosage: 0.1 ML PRN ID
     Route: 023
     Dates: start: 20090217
  6. APLISOL [Suspect]
     Indication: TUBERCULOSIS TEST
     Dosage: 0.1 ML PRN ID
     Route: 023
     Dates: start: 20090224
  7. APLISOL [Suspect]

REACTIONS (1)
  - FALSE POSITIVE TUBERCULOSIS TEST [None]
